FAERS Safety Report 6748041-3 (Version None)
Quarter: 2010Q2

REPORT INFORMATION
  Report Type: 
  Country: None (occurrence: None)
  Receive Date: 20100531
  Receipt Date: 20100517
  Transmission Date: 20101027
  Serious: Yes (Other)
  Sender: FDA-Public Use
  Company Number: US-ASTRAZENECA-2009SE15482

PATIENT
  Sex: Male

DRUGS (4)
  1. SEROQUEL [Suspect]
     Indication: TACHYPHRENIA
     Dosage: 50 MG TO 150 MG
     Route: 048
     Dates: start: 20070409
  2. SEROQUEL [Suspect]
     Indication: SLEEP DISORDER
     Dosage: 50 MG TO 150 MG
     Route: 048
     Dates: start: 20070409
  3. CYMBALTA [Concomitant]
     Dosage: 20 MG TO 40 MG
     Dates: start: 20070409
  4. TRILEPTAL [Concomitant]
     Indication: AFFECTIVE DISORDER
     Dosage: 600 MG TO 1200 MG
     Dates: start: 20070409

REACTIONS (4)
  - DIABETES MELLITUS [None]
  - DIABETES MELLITUS INADEQUATE CONTROL [None]
  - DIABETIC NEPHROPATHY [None]
  - DIABETIC NEUROPATHY [None]
